FAERS Safety Report 19728213 (Version 5)
Quarter: 2022Q4

REPORT INFORMATION
  Report Type: Report from Study
  Country: US (occurrence: US)
  Receive Date: 20210820
  Receipt Date: 20221214
  Transmission Date: 20230113
  Serious: Yes (Hospitalization, Other)
  Sender: FDA-Public Use
  Company Number: US-BAYER-2021-195622

PATIENT
  Sex: Male
  Weight: 51.9 kg

DRUGS (17)
  1. COPANLISIB [Suspect]
     Active Substance: COPANLISIB
     Indication: Squamous cell carcinoma of the tongue
     Dosage: 60 MG
     Route: 042
     Dates: start: 20210223, end: 20210309
  2. COPANLISIB [Suspect]
     Active Substance: COPANLISIB
     Indication: Squamous cell carcinoma of the tongue
     Dosage: 45 MG, GIVEN D1, D8, AND D15 IN 28-DAY CYCLE
     Route: 042
     Dates: start: 2021
  3. HIBICLENS [Concomitant]
     Active Substance: CHLORHEXIDINE GLUCONATE
     Indication: Tumour necrosis
     Dosage: 15CC DAILY/PRN
     Route: 061
     Dates: start: 20210211
  4. DURAGESIC [Concomitant]
     Active Substance: FENTANYL
     Dosage: 25 ?G, Q72HR
     Route: 062
     Dates: start: 20210211
  5. HYCET [Concomitant]
     Active Substance: ACETAMINOPHEN\HYDROCODONE BITARTRATE
     Indication: Tumour pain
     Dosage: 30 MG, Q4HR/PRN
     Dates: start: 20190509
  6. JEVITY 1.2 CAL [Concomitant]
     Indication: Nutritional supplementation
     Dosage: 6 DF, QD
     Dates: start: 20190531
  7. ZOFRAN [Concomitant]
     Active Substance: ONDANSETRON HYDROCHLORIDE
     Indication: Nausea
     Dosage: 8 MG, PRN
     Dates: start: 20200507
  8. ZOFRAN [Concomitant]
     Active Substance: ONDANSETRON HYDROCHLORIDE
     Indication: Vomiting
  9. GABAPENTIN [Concomitant]
     Active Substance: GABAPENTIN
     Indication: Peripheral sensory neuropathy
     Dosage: 300 MG, TID
     Dates: start: 201905
  10. ALBUTEROL [Concomitant]
     Active Substance: ALBUTEROL
     Indication: Asthma
     Dosage: 2.5 MG, QID
     Route: 055
     Dates: start: 20190603
  11. PRILOSEC [Concomitant]
     Active Substance: OMEPRAZOLE MAGNESIUM
     Indication: Gastrooesophageal reflux disease
     Dosage: 20 MG, QD
     Dates: start: 20190109
  12. LEVOTHYROXINE [Concomitant]
     Active Substance: LEVOTHYROXINE
     Indication: Hypothyroidism
     Dosage: 75 ?G, QD
     Dates: start: 20191118
  13. SODIUM BICARBONATE\SODIUM CHLORIDE [Concomitant]
     Active Substance: SODIUM BICARBONATE\SODIUM CHLORIDE
     Indication: Oral pain
     Dosage: 15 ML, BID, SWISH AND SPIT
     Dates: start: 20201213
  14. XYLOCAINE [Concomitant]
     Active Substance: LIDOCAINE HYDROCHLORIDE
     Indication: Tumour pain
     Dosage: 30 ML, QD/PRN
     Route: 061
     Dates: start: 20210108
  15. TRIDERM [TRIAMCINOLONE ACETONIDE] [Concomitant]
     Indication: Skin disorder prophylaxis
     Dosage: 454 G, PRN/BID
     Route: 061
     Dates: start: 20210223
  16. NOVOLOG [Concomitant]
     Active Substance: INSULIN ASPART
     Indication: Diabetes mellitus
     Dosage: 6-26 UNITS, TID BEFORE MEALS
     Route: 058
     Dates: start: 20210325
  17. LANTUS [Concomitant]
     Active Substance: INSULIN GLARGINE
     Indication: Diabetes mellitus
     Dosage: 20 IU, WITH BREAKFAST IF BLOOD GLUCOSE IS MORE THAN 120MG/DL
     Dates: start: 20210325

REACTIONS (6)
  - Respiratory failure [Recovered/Resolved]
  - Hyperglycaemia [Recovered/Resolved]
  - Hypernatraemia [Recovered/Resolved]
  - Nausea [Recovered/Resolved]
  - Vomiting [Recovered/Resolved]
  - Diarrhoea [Recovered/Resolved]

NARRATIVE: CASE EVENT DATE: 20210312
